FAERS Safety Report 4308903-3 (Version None)
Quarter: 2004Q1

REPORT INFORMATION
  Report Type: 
  Country: None (occurrence: None)
  Receive Date: 20040227
  Receipt Date: 20040212
  Transmission Date: 20041129
  Serious: Yes (Death)
  Sender: FDA-Public Use
  Company Number: M04-341-041

PATIENT
  Sex: Male

DRUGS (1)
  1. VELCADE [Suspect]
     Indication: MULTIPLE MYELOMA
     Dates: start: 20040130, end: 20040206

REACTIONS (4)
  - DIALYSIS [None]
  - HYPERCALCAEMIA [None]
  - SEPSIS [None]
  - SOMNOLENCE [None]
